FAERS Safety Report 10518860 (Version 1)
Quarter: 2014Q4

REPORT INFORMATION
  Report Type: Spontaneous
  Country: US (occurrence: None)
  Receive Date: 20141014
  Receipt Date: 20141014
  Transmission Date: 20150528
  Serious: Yes (Hospitalization, Other)
  Sender: FDA-Public Use
  Company Number: None

PATIENT
  Age: 61 Year
  Sex: Male
  Weight: 77.11 kg

DRUGS (11)
  1. PEGASYS [Suspect]
     Active Substance: PEGINTERFERON ALFA-2A
     Indication: CHRONIC HEPATITIS C
     Dosage: 180MCG/0.5 ML, ONE INJECTION SQ, EVERY WEEK, SQ INJECTION
     Route: 058
     Dates: start: 20140822, end: 20140822
  2. AMLODIPINE [Concomitant]
     Active Substance: AMLODIPINE BESYLATE
  3. ALPRAZOLAM. [Concomitant]
     Active Substance: ALPRAZOLAM
  4. SENOKOT [Concomitant]
     Active Substance: SENNOSIDES
  5. METOPROLOL [Concomitant]
     Active Substance: METOPROLOL
  6. CENTRIUM SILVER MVI [Concomitant]
  7. BABY ASPIRIN [Concomitant]
     Active Substance: ASPIRIN
  8. CALTRATE [Concomitant]
     Active Substance: CALCIUM CARBONATE
  9. NEXIUM [Concomitant]
     Active Substance: ESOMEPRAZOLE MAGNESIUM
  10. HYDROCODONE/ACETAMINOPHEN [Concomitant]
     Active Substance: ACETAMINOPHEN\HYDROCODONE
  11. VIT. C [Concomitant]

REACTIONS (1)
  - Pancreatitis [None]

NARRATIVE: CASE EVENT DATE: 20140822
